FAERS Safety Report 14415872 (Version 1)
Quarter: 2018Q1

REPORT INFORMATION
  Report Type: Spontaneous
  Country: RU (occurrence: RU)
  Receive Date: 20180122
  Receipt Date: 20180122
  Transmission Date: 20180509
  Serious: Yes (Other)
  Sender: FDA-Public Use
  Company Number: RU-ASTRAZENECA-2018SE06776

PATIENT
  Age: 48 Year
  Sex: Female
  Weight: 110 kg

DRUGS (3)
  1. FORXIGA [Suspect]
     Active Substance: DAPAGLIFLOZIN
     Indication: TYPE 2 DIABETES MELLITUS
     Dosage: UNKNOWN DOSE
     Route: 048
     Dates: start: 201705, end: 201706
  2. SIOFOR [Concomitant]
     Active Substance: METFORMIN HYDROCHLORIDE
  3. ASPIRIN. [Concomitant]
     Active Substance: ASPIRIN

REACTIONS (2)
  - Pancreatitis relapsing [Recovering/Resolving]
  - Pruritus genital [Recovered/Resolved]

NARRATIVE: CASE EVENT DATE: 201705
